FAERS Safety Report 4662745-8 (Version None)
Quarter: 2005Q2

REPORT INFORMATION
  Report Type: 
  Country: None (occurrence: None)
  Receive Date: 20050516
  Receipt Date: 20050504
  Transmission Date: 20051028
  Serious: Yes (Other)
  Sender: FDA-Public Use
  Company Number: GB-GLAXOSMITHKLINE-B0381051A

PATIENT

DRUGS (1)
  1. CO-AMOXICLAV [Suspect]

REACTIONS (2)
  - DIARRHOEA [None]
  - RECTAL HAEMORRHAGE [None]
